FAERS Safety Report 19963786 (Version 1)
Quarter: 2021Q4

REPORT INFORMATION
  Report Type: Report from Study
  Country: US (occurrence: US)
  Receive Date: 20211018
  Receipt Date: 20211018
  Transmission Date: 20220303
  Serious: No
  Sender: FDA-Public Use
  Company Number: US-NOVARTISTESTPH-NVSC2021US236434

PATIENT
  Sex: Female

DRUGS (1)
  1. KESIMPTA [Suspect]
     Active Substance: OFATUMUMAB
     Indication: Multiple sclerosis
     Dosage: UNK UNK, QMO
     Route: 058
     Dates: start: 20210904

REACTIONS (6)
  - Gait disturbance [Unknown]
  - Limb discomfort [Recovered/Resolved]
  - Tooth injury [Recovered/Resolved]
  - Mobility decreased [Unknown]
  - Fatigue [Recovered/Resolved]
  - Chills [Recovered/Resolved]
